FAERS Safety Report 9227571 (Version 2)
Quarter: 2013Q2

REPORT INFORMATION
  Report Type: Spontaneous
  Country: US (occurrence: US)
  Receive Date: 20130412
  Receipt Date: 20130522
  Transmission Date: 20140414
  Serious: Yes (Hospitalization)
  Sender: FDA-Public Use
  Company Number: US-NOVOPROD-375254

PATIENT
  Age: 62 Year
  Sex: Female
  Weight: 106.12 kg

DRUGS (1)
  1. VICTOZA [Suspect]
     Indication: TYPE 2 DIABETES MELLITUS
     Route: 058

REACTIONS (2)
  - Thyroid neoplasm [Recovering/Resolving]
  - Diabetes mellitus inadequate control [Not Recovered/Not Resolved]
